FAERS Safety Report 7004194-3 (Version None)
Quarter: 2010Q3

REPORT INFORMATION
  Report Type: 
  Country: None (occurrence: None)
  Receive Date: 20100920
  Receipt Date: 20100212
  Transmission Date: 20110219
  Serious: No
  Sender: FDA-Public Use
  Company Number: US-WYE-H13620010

PATIENT
  Sex: Male

DRUGS (2)
  1. PRISTIQ [Suspect]
     Route: 048
     Dates: start: 20091001
  2. PRISTIQ [Suspect]
     Dosage: ^TAPERED OFF^
     Route: 048
     Dates: end: 20100129

REACTIONS (3)
  - ANXIETY [None]
  - DRUG WITHDRAWAL SYNDROME [None]
  - NIGHTMARE [None]
